FAERS Safety Report 22814712 (Version 12)
Quarter: 2024Q2

REPORT INFORMATION
  Report Type: Other
  Country: JP (occurrence: JP)
  Receive Date: 20230811
  Receipt Date: 20240611
  Transmission Date: 20240716
  Serious: Yes (Death, Other)
  Sender: FDA-Public Use
  Company Number: JP-CHUGAI-2023024027

PATIENT
  Age: 55 Year
  Sex: Female
  Weight: 50.4 kg

DRUGS (3)
  1. TECENTRIQ [Suspect]
     Active Substance: ATEZOLIZUMAB
     Indication: Triple negative breast cancer
     Route: 041
     Dates: start: 20230608, end: 20240118
  2. PACLITAXEL [Suspect]
     Active Substance: PACLITAXEL
     Indication: Triple negative breast cancer
     Route: 041
     Dates: start: 20230608, end: 20230803
  3. PACLITAXEL [Suspect]
     Active Substance: PACLITAXEL
     Route: 041
     Dates: start: 20230831, end: 20230928

REACTIONS (6)
  - Anaemia [Recovering/Resolving]
  - Neutropenia [Recovered/Resolved]
  - Rash maculo-papular [Recovering/Resolving]
  - Nausea [Recovering/Resolving]
  - Triple negative breast cancer [Fatal]
  - Oedema peripheral [Recovered/Resolved]

NARRATIVE: CASE EVENT DATE: 20230615
